FAERS Safety Report 7296171-2 (Version None)
Quarter: 2011Q1

REPORT INFORMATION
  Report Type: 
  Country: None (occurrence: None)
  Receive Date: 20110211
  Receipt Date: 20110211
  Transmission Date: 20110831
  Serious: No
  Sender: FDA-Public Use
  Company Number: None

PATIENT
  Age: 64 Year

DRUGS (3)
  1. FEXOFENADINE HCL AND PSEUDOEPHEDRINE HCL [Suspect]
  2. COMBIVENT [Suspect]
  3. DETROL LA [Suspect]

REACTIONS (2)
  - DRY MOUTH [None]
  - DYSPNOEA [None]
